FAERS Safety Report 6216439-8 (Version None)
Quarter: 2009Q2

REPORT INFORMATION
  Report Type: 
  Country: None (occurrence: None)
  Receive Date: 20090605
  Receipt Date: 20090402
  Transmission Date: 20091009
  Serious: Yes (Other)
  Sender: FDA-Public Use
  Company Number: US-BAYER-200829369NA

PATIENT
  Age: 73 Year
  Sex: Female

DRUGS (17)
  1. MAGNEVIST [Suspect]
     Indication: DRUG USE FOR UNKNOWN INDICATION
     Dosage: TOTAL DAILY DOSE: 20 ML
     Route: 042
     Dates: start: 20060629, end: 20060629
  2. OMNISCAN [Suspect]
     Indication: DRUG USE FOR UNKNOWN INDICATION
  3. OPTIMARK [Suspect]
     Indication: DRUG USE FOR UNKNOWN INDICATION
  4. MULTIHANCE [Suspect]
     Indication: DRUG USE FOR UNKNOWN INDICATION
  5. PROHANCE [Suspect]
     Indication: DRUG USE FOR UNKNOWN INDICATION
  6. SYNTHROID [Concomitant]
     Indication: HYPOTHYROIDISM
  7. PREDNISONE [Concomitant]
     Indication: ARTHRITIS
     Dates: start: 20050101
  8. ALTACE [Concomitant]
     Indication: BLOOD PRESSURE INCREASED
     Dates: start: 20070101
  9. LIPITOR [Concomitant]
     Indication: BLOOD CHOLESTEROL INCREASED
     Dates: start: 20050101
  10. ASPIRIN [Concomitant]
     Indication: THROMBOSIS PROPHYLAXIS
     Dosage: TOTAL DAILY DOSE: 81 MG  UNIT DOSE: 81 MG
     Route: 048
  11. IRON [Concomitant]
     Indication: ANAEMIA
  12. VITAMIN B-12 [Concomitant]
  13. PLAVIX [Concomitant]
     Indication: THROMBOSIS PROPHYLAXIS
     Dates: start: 20060801
  14. NAPROXEN [Concomitant]
     Indication: ARTHRITIS
     Dates: start: 20010101
  15. CIPRO [Concomitant]
  16. COLCHICINE [Concomitant]
  17. PRESCRIPTION CREAM APPLIED TO LEGS [Concomitant]
     Dosage: APPLIED TO LEGS
     Route: 061

REACTIONS (13)
  - ANXIETY [None]
  - DEPRESSION [None]
  - EMOTIONAL DISTRESS [None]
  - GENERAL PHYSICAL HEALTH DETERIORATION [None]
  - INJURY [None]
  - MOBILITY DECREASED [None]
  - NEPHROGENIC SYSTEMIC FIBROSIS [None]
  - OEDEMA PERIPHERAL [None]
  - PAIN [None]
  - PAIN IN EXTREMITY [None]
  - SKIN HYPERTROPHY [None]
  - SKIN INDURATION [None]
  - SKIN LESION [None]
